FAERS Safety Report 7371892-1 (Version None)
Quarter: 2011Q1

REPORT INFORMATION
  Report Type: 
  Country: None (occurrence: None)
  Receive Date: 20110310
  Receipt Date: 20090916
  Transmission Date: 20110831
  Serious: Yes (Hospitalization, Other)
  Sender: FDA-Public Use
  Company Number: 2009-200460-NL

PATIENT
  Age: 39 Year
  Sex: Female
  Weight: 79.3795 kg

DRUGS (6)
  1. PRILOSEC [Concomitant]
  2. ZOLOFT [Concomitant]
  3. TOPAMAX [Concomitant]
  4. CLARITIN [Concomitant]
  5. NUVARING [Suspect]
     Indication: MENORRHAGIA
     Dosage: QM, VAG
     Route: 067
     Dates: start: 20071218, end: 20080801
  6. NUVARING [Suspect]
     Indication: CONTRACEPTION
     Dosage: QM, VAG
     Route: 067
     Dates: start: 20071218, end: 20080801

REACTIONS (18)
  - MOOD SWINGS [None]
  - CHEST PAIN [None]
  - ACUTE SINUSITIS [None]
  - DERMAL CYST [None]
  - HIDRADENITIS [None]
  - MIGRAINE [None]
  - HYPOTHYROIDISM [None]
  - DEEP VEIN THROMBOSIS [None]
  - FATIGUE [None]
  - PHOTOREFRACTIVE KERATECTOMY [None]
  - CERVICAL DYSPLASIA [None]
  - UTERINE LEIOMYOMA [None]
  - VULVA CYST [None]
  - TIC [None]
  - MUSCLE TIGHTNESS [None]
  - MYALGIA [None]
  - GOITRE [None]
  - DRY EYE [None]
